FAERS Safety Report 4374311-2 (Version None)
Quarter: 2004Q2

REPORT INFORMATION
  Report Type: 
  Country: None (occurrence: None)
  Receive Date: 20040604
  Receipt Date: 20030717
  Transmission Date: 20050107
  Serious: Yes (Other)
  Sender: FDA-Public Use
  Company Number: US-JNJFOC-20040505811

PATIENT
  Age: 77 Year
  Sex: Female

DRUGS (4)
  1. MOTRIN IB [Suspect]
     Indication: ORAL PAIN
     Dosage: 600 MG, 1 IN 8 HOUR, ORAL
     Route: 048
     Dates: start: 20030626
  2. MOTRIN IB [Suspect]
     Dosage: 600 MG, 1 IN 8 HOUR, ORAL
     Route: 048
     Dates: start: 20030716
  3. VALDECOXIB [Concomitant]
  4. TAMBACOR (FLEICAINIDE ACETATE) [Concomitant]

REACTIONS (1)
  - HEART RATE IRREGULAR [None]
